FAERS Safety Report 15463063 (Version 2)
Quarter: 2018Q4

REPORT INFORMATION
  Report Type: Spontaneous
  Country: US (occurrence: US)
  Receive Date: 20181004
  Receipt Date: 20181022
  Transmission Date: 20190204
  Serious: No
  Sender: FDA-Public Use
  Company Number: US-PFIZER INC-2018392700

PATIENT
  Age: 64 Year
  Sex: Female
  Weight: 73.3 kg

DRUGS (1)
  1. FLECTOR [Suspect]
     Active Substance: DICLOFENAC EPOLAMINE
     Indication: ARTHRITIS
     Dosage: UNK
     Dates: start: 20180924

REACTIONS (1)
  - Drug effective for unapproved indication [Unknown]
